FAERS Safety Report 15237501 (Version 1)
Quarter: 2018Q3

REPORT INFORMATION
  Report Type: Spontaneous
  Country: US (occurrence: US)
  Receive Date: 20180803
  Receipt Date: 20180803
  Transmission Date: 20181010
  Serious: Yes (Other)
  Sender: FDA-Public Use
  Company Number: US-BAYER-2018-140887

PATIENT
  Age: 28 Year
  Sex: Female

DRUGS (1)
  1. COPPERTONE CLEARLY SHEER SPF 30 (AVOBENZONE\HOMOSALATE\OCTISALATE\OCTOCRYLENE) [Suspect]
     Active Substance: AVOBENZONE\HOMOSALATE\OCTISALATE\OCTOCRYLENE
     Indication: PROPHYLAXIS AGAINST SOLAR RADIATION
     Dosage: FOLLOWED THE DIRECTIONS AND REAPPLIED AS RECOMMENDED
     Dates: start: 20180717

REACTIONS (4)
  - Product quality issue [None]
  - Pain of skin [None]
  - Sunburn [None]
  - Drug ineffective [None]

NARRATIVE: CASE EVENT DATE: 201807
